FAERS Safety Report 10484007 (Version 1)
Quarter: 2014Q3

REPORT INFORMATION
  Report Type: Spontaneous
  Country: AU (occurrence: AU)
  Receive Date: 20140930
  Receipt Date: 20140930
  Transmission Date: 20150326
  Serious: Yes (Hospitalization)
  Sender: FDA-Public Use
  Company Number: AU-ASTRAZENECA-2014SE71693

PATIENT
  Sex: Male

DRUGS (1)
  1. ROPIVACAINE [Suspect]
     Active Substance: ROPIVACAINE
     Route: 065
     Dates: start: 201408

REACTIONS (2)
  - Humerus fracture [Recovered/Resolved]
  - Convulsion [Recovered/Resolved with Sequelae]

NARRATIVE: CASE EVENT DATE: 201408
